FAERS Safety Report 5146841-7 (Version None)
Quarter: 2006Q4

REPORT INFORMATION
  Report Type: 
  Country: None (occurrence: None)
  Receive Date: 20061107
  Receipt Date: 20061107
  Transmission Date: 20070319
  Serious: No
  Sender: FDA-Public Use
  Company Number: None

PATIENT
  Age: 49 Year
  Sex: Female
  Weight: 58.9676 kg

DRUGS (1)
  1. ZICAM MATRXX [Suspect]
     Indication: NASOPHARYNGITIS
     Dates: start: 20050325, end: 20050326

REACTIONS (3)
  - AGEUSIA [None]
  - ANOSMIA [None]
  - SINUSITIS [None]
